FAERS Safety Report 9553703 (Version 1)
Quarter: 2013Q3

REPORT INFORMATION
  Report Type: Spontaneous
  Country: US (occurrence: None)
  Receive Date: 20130724
  Receipt Date: 20130724
  Transmission Date: 20140515
  Serious: Yes (Other)
  Sender: FDA-Public Use
  Company Number: PHEH2012US021347

PATIENT
  Age: 57 Year
  Sex: Female

DRUGS (1)
  1. GLEEVEC [Suspect]
     Indication: GASTRIC CANCER
     Route: 048
     Dates: start: 20121017

REACTIONS (5)
  - Urinary tract infection [None]
  - Fatigue [None]
  - Diarrhoea [None]
  - Oral pain [None]
  - Oral mucosal blistering [None]
